FAERS Safety Report 7249070-6 (Version None)
Quarter: 2011Q1

REPORT INFORMATION
  Report Type: 
  Country: None (occurrence: None)
  Receive Date: 20110128
  Receipt Date: 20100908
  Transmission Date: 20110831
  Serious: Yes (Hospitalization)
  Sender: FDA-Public Use
  Company Number: US-BAYER-201022581NA

PATIENT
  Sex: Female
  Weight: 44.444 kg

DRUGS (6)
  1. OCELLA [Suspect]
     Indication: PRODUCT USED FOR UNKNOWN INDICATION
     Dosage: UNK
     Dates: start: 20060101, end: 20090101
  2. OCELLA [Suspect]
     Indication: OVARIAN CYST
  3. YAZ [Suspect]
     Indication: OVARIAN CYST
  4. YAZ [Suspect]
     Indication: PRODUCT USED FOR UNKNOWN INDICATION
     Dosage: UNK
     Route: 048
     Dates: start: 20060101, end: 20090301
  5. YASMIN [Suspect]
     Indication: OVARIAN CYST
  6. YASMIN [Suspect]
     Indication: PRODUCT USED FOR UNKNOWN INDICATION
     Dosage: UNK
     Route: 048
     Dates: start: 20060101, end: 20090101

REACTIONS (4)
  - MENTAL DISORDER [None]
  - THROMBOSIS [None]
  - HEPATIC FAILURE [None]
  - RENAL FAILURE [None]
